FAERS Safety Report 17258891 (Version 2)
Quarter: 2020Q1

REPORT INFORMATION
  Report Type: Spontaneous
  Country: CN (occurrence: CN)
  Receive Date: 20200110
  Receipt Date: 20200318
  Transmission Date: 20200409
  Serious: Yes (Death)
  Sender: FDA-Public Use
  Company Number: CN-EISAI MEDICAL RESEARCH-EC-2020-068281

PATIENT
  Age: 52 Year
  Sex: Female

DRUGS (2)
  1. ERIBULIN [Suspect]
     Active Substance: ERIBULIN
     Indication: BREAST CANCER
     Route: 042
     Dates: start: 20200102, end: 20200102
  2. FULVESTRANT. [Concomitant]
     Active Substance: FULVESTRANT
     Indication: BREAST CANCER
     Dosage: FREQUENCY UNKNOWN
     Route: 030

REACTIONS (3)
  - Mouth ulceration [Unknown]
  - White blood cell count decreased [Fatal]
  - Blood potassium decreased [Fatal]

NARRATIVE: CASE EVENT DATE: 20200107
